FAERS Safety Report 9530712 (Version 1)
Quarter: 2013Q3

REPORT INFORMATION
  Report Type: Spontaneous
  Country: US (occurrence: None)
  Receive Date: 20130916
  Receipt Date: 20130916
  Transmission Date: 20140515
  Serious: Yes (Other)
  Sender: FDA-Public Use
  Company Number: None

PATIENT
  Age: 24 Year
  Sex: Female

DRUGS (1)
  1. ACTHAR [Suspect]
     Indication: OPTIC NEUROPATHY
     Dosage: 80 UNITS DAILY X5 DAYS SQ
     Route: 058
     Dates: start: 20130822, end: 20130826

REACTIONS (2)
  - Abdominal pain upper [None]
  - Abdominal discomfort [None]
